FAERS Safety Report 13654578 (Version 1)
Quarter: 2017Q2

REPORT INFORMATION
  Report Type: Spontaneous
  Country: FR (occurrence: FR)
  Receive Date: 20170615
  Receipt Date: 20170615
  Transmission Date: 20170830
  Serious: Yes (Hospitalization)
  Sender: FDA-Public Use
  Company Number: FR-009507513-1706FRA004394

PATIENT
  Age: 66 Year
  Sex: Male

DRUGS (5)
  1. PAROXETINE. [Interacting]
     Active Substance: PAROXETINE
     Dosage: 20 MG, PER DAY
  2. KARDEGIC [Interacting]
     Active Substance: ASPIRIN LYSINE
     Indication: PROPHYLAXIS
     Dosage: 75 MG PER DAY
     Route: 048
     Dates: start: 1997
  3. TEMODAL [Suspect]
     Active Substance: TEMOZOLOMIDE
     Indication: NEUROBLASTOMA
     Dosage: UNK
     Route: 048
     Dates: start: 20170307, end: 20170410
  4. ISOPTINE [Interacting]
     Active Substance: VERAPAMIL HYDROCHLORIDE
     Indication: MYOCARDIAL INFARCTION
     Dosage: 120 MG, PER DAY
     Route: 048
  5. SOLUPRED [Suspect]
     Active Substance: PREDNISOLONE
     Indication: NEUROBLASTOMA
     Dosage: 20 MG, PER DAY
     Route: 048

REACTIONS (1)
  - Rectal haemorrhage [Recovered/Resolved]

NARRATIVE: CASE EVENT DATE: 20170514
